FAERS Safety Report 12765481 (Version 2)
Quarter: 2016Q4

REPORT INFORMATION
  Report Type: Report from Study
  Country: CN (occurrence: CN)
  Receive Date: 20160921
  Receipt Date: 20161128
  Transmission Date: 20170207
  Serious: Yes (Death)
  Sender: FDA-Public Use
  Company Number: CN-ROCHE-1833069

PATIENT
  Age: 71 Year
  Sex: Male

DRUGS (2)
  1. ALTEPLASE [Suspect]
     Active Substance: ALTEPLASE
     Indication: ISCHAEMIC STROKE
     Dosage: 90 MG DOSE AT MAXIMUM, 10% IN A BOLUS IN 1 MINUTE WITH THE
     Route: 040
  2. ALTEPLASE [Suspect]
     Active Substance: ALTEPLASE
     Dosage: 90 MG DOSE AT MAXIMUM, REMAINING DOSE IN A 60-MIN INFUSION
     Route: 042

REACTIONS (1)
  - Death [Fatal]
